FAERS Safety Report 7769090-2 (Version None)
Quarter: 2011Q3

REPORT INFORMATION
  Report Type: 
  Country: None (occurrence: None)
  Receive Date: 20110922
  Receipt Date: 20110318
  Transmission Date: 20111222
  Serious: No
  Sender: FDA-Public Use
  Company Number: US-ASTRAZENECA-2009UW11609

PATIENT
  Age: 43 Year
  Sex: Female
  Weight: 124.7 kg

DRUGS (27)
  1. LIPITOR [Concomitant]
     Indication: HYPERLIPIDAEMIA
  2. SEROQUEL [Suspect]
     Indication: BIPOLAR DISORDER
     Dosage: 25 MG-200 MG
     Route: 048
     Dates: start: 19970101, end: 20030101
  3. SEROQUEL [Suspect]
     Dosage: 100 MG ,1.5 TABLETS AT BEDTIME
     Route: 048
     Dates: start: 20080610
  4. CELEXA [Concomitant]
  5. LITHIUM CARBONATE [Concomitant]
     Indication: BIPOLAR DISORDER
     Dosage: 300 MG  1 CAPSULE IN MORNING AND 2 CAPS ATBEDTIME
     Route: 048
  6. GEIDIN [Concomitant]
  7. SEROQUEL [Suspect]
     Indication: DEPRESSION
     Dosage: 25 MG-200 MG
     Route: 048
     Dates: start: 19970101, end: 20030101
  8. SEROQUEL [Suspect]
     Dosage: 100 MG ,1.5 TABLETS AT BEDTIME
     Route: 048
     Dates: start: 20080610
  9. CLONAZEPAM [Concomitant]
     Indication: RESTLESS LEGS SYNDROME
     Dosage: 1.5 MG AFTER DINNER,1 MG  A TBEDTIME
     Dates: start: 20080426
  10. SYNTHROID [Concomitant]
     Indication: HYPOTHYROIDISM
  11. XANAX [Concomitant]
  12. NEXIUM [Concomitant]
     Indication: GASTROOESOPHAGEAL REFLUX DISEASE
     Dates: start: 20070823
  13. PROZAC [Concomitant]
     Dates: start: 20070101
  14. SINGULAIR [Concomitant]
     Dates: start: 20070823
  15. SEROQUEL [Suspect]
     Dosage: 100 MG ,1.5 TABLETS AT BEDTIME
     Route: 048
     Dates: start: 20080610
  16. CLONAZEPAM [Concomitant]
     Indication: ANXIETY DISORDER
     Dosage: 1.5 MG AFTER DINNER,1 MG  A TBEDTIME
     Dates: start: 20080426
  17. ZOCOR [Concomitant]
     Indication: BLOOD CHOLESTEROL INCREASED
     Dates: start: 20070423
  18. ABILIFY [Concomitant]
  19. SEROQUEL [Suspect]
     Indication: THINKING ABNORMAL
     Dosage: 25 MG-200 MG
     Route: 048
     Dates: start: 19970101, end: 20030101
  20. SEROQUEL [Suspect]
     Route: 048
     Dates: start: 20070823
  21. SEROQUEL [Suspect]
     Route: 048
     Dates: start: 20070823
  22. PROZAC [Concomitant]
     Indication: DEPRESSION
     Dates: start: 20070401
  23. TRAZODONE HYDROCHLORIDE [Concomitant]
     Indication: DEPRESSION
     Dates: start: 20070401
  24. EFFEXOR [Concomitant]
  25. SEROQUEL [Suspect]
     Route: 048
     Dates: start: 20070823
  26. LITHIUM CARBONATE [Concomitant]
     Indication: AFFECTIVE DISORDER
     Dosage: 300 MG  1 CAPSULE IN MORNING AND 2 CAPS ATBEDTIME
     Route: 048
  27. HALDOL [Concomitant]
     Dates: start: 20050103

REACTIONS (3)
  - OBESITY [None]
  - TYPE 2 DIABETES MELLITUS [None]
  - RESTLESS LEGS SYNDROME [None]
